FAERS Safety Report 5018955-3 (Version None)
Quarter: 2006Q2

REPORT INFORMATION
  Report Type: 
  Country: None (occurrence: None)
  Receive Date: 20060531
  Receipt Date: 20060516
  Transmission Date: 20061013
  Serious: Yes (Hospitalization)
  Sender: FDA-Public Use
  Company Number: SPI200600015

PATIENT
  Age: 42 Year
  Sex: Female
  Weight: 75.7 kg

DRUGS (8)
  1. AMITIZA [Suspect]
     Indication: CONSTIPATION
     Dosage: 24 MCG, BID, ORAL
     Route: 048
     Dates: start: 20060505, end: 20060505
  2. ESTRATEST [Concomitant]
  3. TOPROL-XL [Concomitant]
  4. PREVACID [Concomitant]
  5. ZOFRAN [Concomitant]
  6. BUMEX [Concomitant]
  7. XIFAXAN (RIFAXIMIN) [Concomitant]
  8. ZELNORM [Concomitant]

REACTIONS (7)
  - ANAPHYLACTIC SHOCK [None]
  - CHEST DISCOMFORT [None]
  - DEHYDRATION [None]
  - ELECTROCARDIOGRAM CHANGE [None]
  - PALPITATIONS [None]
  - RESPIRATORY DISORDER [None]
  - SYNCOPE [None]
